FAERS Safety Report 7283510-1 (Version None)
Quarter: 2011Q1

REPORT INFORMATION
  Report Type: 
  Country: None (occurrence: None)
  Receive Date: 20110209
  Receipt Date: 20110204
  Transmission Date: 20110831
  Serious: Yes (Other)
  Sender: FDA-Public Use
  Company Number: DE-BRISTOL-MYERS SQUIBB COMPANY-15518921

PATIENT
  Age: 12 Year
  Sex: Male

DRUGS (5)
  1. ETOPOSIDE [Suspect]
     Indication: BONE SARCOMA
  2. METHOTREXATE [Suspect]
     Indication: BONE SARCOMA
     Dosage: 1 DF = 12G/M SUP(2)
  3. CISPLATIN [Suspect]
     Indication: BONE SARCOMA
     Dosage: 1 DF = 120MG/M SUP(2)
  4. IFOSFAMIDE [Suspect]
     Indication: BONE SARCOMA
  5. DOXORUBICIN [Suspect]
     Indication: BONE SARCOMA
     Dosage: 1 DF = 75MG/M SUP(2)

REACTIONS (5)
  - RENAL CYST [None]
  - COAGULOPATHY [None]
  - HEPATOTOXICITY [None]
  - BONE MARROW FAILURE [None]
  - RENAL FAILURE ACUTE [None]
